FAERS Safety Report 7494189-8 (Version None)
Quarter: 2011Q2

REPORT INFORMATION
  Report Type: 
  Country: None (occurrence: None)
  Receive Date: 20110520
  Receipt Date: 20110511
  Transmission Date: 20111010
  Serious: Yes (Hospitalization)
  Sender: FDA-Public Use
  Company Number: US-JNJFOC-20110507124

PATIENT
  Sex: Male

DRUGS (17)
  1. PREDNISONE [Suspect]
     Route: 048
     Dates: start: 20110429
  2. ZOMETA [Concomitant]
     Indication: PROSTATE CANCER
     Dosage: 4.0 UNITS AND FREQUENCY UNSPECIFIED
     Route: 065
     Dates: start: 20080926
  3. ABIRATERONE ACETATE [Suspect]
     Indication: PROSTATE CANCER METASTATIC
     Route: 048
     Dates: start: 20110316, end: 20110405
  4. SODIUM CHLORIDE [Concomitant]
     Indication: DEHYDRATION
     Route: 042
     Dates: start: 20110324
  5. ABIRATERONE ACETATE [Suspect]
     Route: 048
     Dates: start: 20110310, end: 20110313
  6. PREDNISONE [Suspect]
     Indication: PROSTATE CANCER METASTATIC
     Route: 048
     Dates: start: 20110114, end: 20110428
  7. GOSERELIN [Concomitant]
     Route: 058
     Dates: start: 20090226
  8. FLUOXETINE [Concomitant]
     Indication: DEPRESSION
     Route: 048
     Dates: start: 20050101
  9. PREVACID [Concomitant]
     Indication: DYSPEPSIA
     Route: 048
     Dates: start: 20101210
  10. GOSERELIN [Concomitant]
     Indication: CANCER HORMONAL THERAPY
     Dosage: 10.8 UNITS AND FREQUENCY NOT SPECIFIED
     Route: 058
     Dates: start: 20061030
  11. NAPROXEN (ALEVE) [Concomitant]
     Indication: BACK PAIN
     Route: 048
     Dates: start: 20101101
  12. DECADRON [Concomitant]
     Indication: DEHYDRATION
     Route: 042
     Dates: start: 20110324
  13. ABIRATERONE ACETATE [Suspect]
     Route: 048
     Dates: start: 20110114, end: 20110228
  14. PREDNISONE [Suspect]
     Route: 048
     Dates: start: 20090226
  15. CALCIUM WITH VITAMIN D [Concomitant]
     Indication: PROPHYLAXIS
     Route: 048
     Dates: start: 20110210
  16. RED BLOOD CELLS [Concomitant]
     Indication: ANAEMIA
     Route: 042
     Dates: start: 20110511, end: 20110511
  17. RED BLOOD CELLS [Concomitant]
     Route: 042
     Dates: start: 20110425, end: 20110425

REACTIONS (1)
  - FAILURE TO THRIVE [None]
